FAERS Safety Report 6106748-5 (Version None)
Quarter: 2009Q1

REPORT INFORMATION
  Report Type: 
  Country: None (occurrence: None)
  Receive Date: 20090307
  Receipt Date: 20090224
  Transmission Date: 20090719
  Serious: Yes (Other)
  Sender: FDA-Public Use
  Company Number: JP-JNJCH-2009005567

PATIENT
  Sex: Male

DRUGS (1)
  1. ASPIRIN [Suspect]
     Indication: CARDIOVASCULAR DISORDER
     Dosage: TEXT:100 MG (FREQUENCY UNSPECIFIED)
     Route: 048

REACTIONS (1)
  - GASTROINTESTINAL ULCER [None]
